FAERS Safety Report 15767202 (Version 1)
Quarter: 2018Q4

REPORT INFORMATION
  Report Type: Spontaneous
  Country: CN (occurrence: CN)
  Receive Date: 20181227
  Receipt Date: 20181227
  Transmission Date: 20190205
  Serious: Yes (Death, Hospitalization)
  Sender: FDA-Public Use
  Company Number: CN-CELGENEUS-CHN-20181207670

PATIENT
  Age: 65 Year
  Sex: Male

DRUGS (5)
  1. TESTOSTERONE UNDECANOATE. [Concomitant]
     Active Substance: TESTOSTERONE UNDECANOATE
     Indication: APLASTIC ANAEMIA
     Dosage: 120 MILLIGRAM
     Route: 048
  2. GLEDITSIAE [Concomitant]
     Indication: APLASTIC ANAEMIA
     Route: 048
  3. AZACITIDINE. [Suspect]
     Active Substance: AZACITIDINE
     Indication: REFRACTORY ANAEMIA WITH AN EXCESS OF BLASTS
     Route: 041
     Dates: start: 20181122
  4. ZAOFAN COMPOUND [Concomitant]
     Indication: APLASTIC ANAEMIA
     Route: 048
  5. CICLOSPORIN [Concomitant]
     Active Substance: CYCLOSPORINE
     Indication: APLASTIC ANAEMIA
     Dosage: 250 MILLIGRAM
     Route: 048

REACTIONS (2)
  - Gastrointestinal haemorrhage [Unknown]
  - Platelet count decreased [Fatal]

NARRATIVE: CASE EVENT DATE: 20181211
